FAERS Safety Report 5007992-0 (Version None)
Quarter: 2006Q2

REPORT INFORMATION
  Report Type: 
  Country: None (occurrence: None)
  Receive Date: 20060518
  Receipt Date: 20060509
  Transmission Date: 20061013
  Serious: Yes (Hospitalization, Disabling)
  Sender: FDA-Public Use
  Company Number: 2006062224

PATIENT
  Age: 70 Year
  Sex: Female
  Weight: 74 kg

DRUGS (3)
  1. FRAGMIN [Suspect]
     Indication: PROPHYLAXIS
     Dosage: 11250 I.U. (DAILY), SUBCUTANEOUS
     Route: 058
     Dates: start: 20050812, end: 20050819
  2. HEPARIN SODIUM [Concomitant]
  3. LIQUAEMIN INJ [Concomitant]

REACTIONS (3)
  - DEEP VEIN THROMBOSIS [None]
  - PULMONARY EMBOLISM [None]
  - THROMBOCYTOPENIA [None]
